FAERS Safety Report 25258263 (Version 3)
Quarter: 2025Q2

REPORT INFORMATION
  Report Type: Spontaneous
  Country: US (occurrence: US)
  Receive Date: 20250501
  Receipt Date: 20250604
  Transmission Date: 20250716
  Serious: Yes (Other)
  Sender: UNITED THERAPEUTICS
  Company Number: US-UNITED THERAPEUTICS-UNT-2024-005652

PATIENT
  Age: 68 Year
  Sex: Female
  Weight: 61.224 kg

DRUGS (37)
  1. ORENITRAM [Suspect]
     Active Substance: TREPROSTINIL
     Indication: Pulmonary arterial hypertension
     Dosage: 3 MG (2 TABLETS OF 0.25 MG AND 1 TABLET OF 2.5 MG), TID
     Dates: start: 20240126, end: 2024
  2. ORENITRAM [Suspect]
     Active Substance: TREPROSTINIL
     Dosage: 3.25 MG, TID
     Dates: start: 20240616, end: 202406
  3. ORENITRAM [Suspect]
     Active Substance: TREPROSTINIL
     Dosage: 3.125 MG, TID
     Dates: start: 202406, end: 2024
  4. ORENITRAM [Suspect]
     Active Substance: TREPROSTINIL
     Dosage: 3 MG (1 TABLET OF 2.5 MG AND 2 TABLETS OF 0.25 MG), Q8H
     Dates: start: 2024
  5. ORENITRAM [Suspect]
     Active Substance: TREPROSTINIL
  6. ORENITRAM [Suspect]
     Active Substance: TREPROSTINIL
     Indication: Pulmonary arterial hypertension
  7. ORENITRAM [Suspect]
     Active Substance: TREPROSTINIL
     Indication: Pulmonary arterial hypertension
  8. ORENITRAM [Suspect]
     Active Substance: TREPROSTINIL
     Indication: Pulmonary arterial hypertension
  9. REVLIMID [Suspect]
     Active Substance: LENALIDOMIDE
     Indication: Light chain disease
     Dosage: 25 MG (1 CAPSULE OF 25 MG), QD
     Dates: start: 20240205
  10. DECADRON [Suspect]
     Active Substance: DEXAMETHASONE
     Indication: Light chain disease
     Dosage: 20 MG (5 TABLETS OF 4 MG), QWK
     Dates: start: 20231106
  11. DARZALEX [Suspect]
     Active Substance: DARATUMUMAB
     Indication: Light chain disease
  12. VELCADE [Suspect]
     Active Substance: BORTEZOMIB
     Indication: Light chain disease
  13. MORPHINE SULFATE [Suspect]
     Active Substance: MORPHINE SULFATE
     Indication: Bone pain
     Dosage: 15 MG, BID
     Dates: end: 20240219
  14. DARATUMUMAB [Suspect]
     Active Substance: DARATUMUMAB
     Indication: Light chain disease
  15. LENALIDOMIDE [Suspect]
     Active Substance: LENALIDOMIDE
     Indication: Light chain disease
  16. DEXAMETHASONE [Suspect]
     Active Substance: DEXAMETHASONE
     Indication: Light chain disease
  17. OPSUMIT [Suspect]
     Active Substance: MACITENTAN
     Indication: Product used for unknown indication
  18. MICRO-K [Concomitant]
     Active Substance: POTASSIUM CHLORIDE
     Indication: Product used for unknown indication
     Dosage: 20 MEQ (2 CAPSULES OF 10 MEQ), BID
     Dates: start: 20230821
  19. REMERON [Concomitant]
     Active Substance: MIRTAZAPINE
     Indication: Product used for unknown indication
     Dosage: 15 MG, QD (NIGHTLY)
     Dates: start: 20230413
  20. VITAMIN D3 [Concomitant]
     Active Substance: CHOLECALCIFEROL
     Indication: Product used for unknown indication
  21. ADCIRCA [Concomitant]
     Active Substance: TADALAFIL
     Indication: Pulmonary arterial hypertension
  22. ADCIRCA [Concomitant]
     Active Substance: TADALAFIL
     Dosage: 20 MG (2 TABLETS OF 20 MG), BID
     Dates: start: 20231229
  23. LIPITOR [Concomitant]
     Active Substance: ATORVASTATIN CALCIUM
     Indication: Product used for unknown indication
     Dosage: 40 MG (1 TABLET OF 40 MG), QD (NIGHTLY)
     Dates: start: 20230413
  24. ELIQUIS [Concomitant]
     Active Substance: APIXABAN
     Indication: Pulmonary hypertension
     Dosage: 5 MG (1 TABLET OF 5 MG), BID
     Dates: start: 20230310
  25. ELIQUIS [Concomitant]
     Active Substance: APIXABAN
     Indication: Pulmonary embolism
  26. LANOXIN [Concomitant]
     Active Substance: DIGOXIN
     Indication: Product used for unknown indication
  27. ATROPINE\DIPHENOXYLATE [Concomitant]
     Active Substance: ATROPINE\DIPHENOXYLATE
     Indication: Product used for unknown indication
  28. DULERA [Concomitant]
     Active Substance: FORMOTEROL FUMARATE DIHYDRATE\MOMETASONE FUROATE
     Indication: Product used for unknown indication
     Dosage: 2 PUFFS, BID
     Dates: start: 20230201
  29. ZOLOFT [Concomitant]
     Active Substance: SERTRALINE HYDROCHLORIDE
     Indication: Product used for unknown indication
  30. ZOLOFT [Concomitant]
     Active Substance: SERTRALINE HYDROCHLORIDE
     Dosage: 50 MG (1 TABLET OF 50 MG), QD
     Dates: start: 20231221
  31. ZOFRAN [Concomitant]
     Active Substance: ONDANSETRON HYDROCHLORIDE
     Indication: Product used for unknown indication
     Dosage: 8 MG (1 TABLET OF 8 MG), TID
     Dates: start: 20240108
  32. ZOVIRAX [Concomitant]
     Active Substance: ACYCLOVIR
     Indication: Product used for unknown indication
     Dosage: 400 MG (1 TABLET OF 400 MG), BID
     Dates: start: 20240129
  33. DELTASONE [Concomitant]
     Active Substance: PREDNISONE
     Indication: Product used for unknown indication
  34. KLOR-CON [Concomitant]
     Active Substance: POTASSIUM CHLORIDE
     Indication: Product used for unknown indication
  35. BENADRYL [Concomitant]
     Active Substance: DIPHENHYDRAMINE HYDROCHLORIDE
     Indication: Pharyngeal erythema
  36. OXYGEN [Concomitant]
     Active Substance: OXYGEN
     Indication: Dyspnoea
  37. PULMICORT TURBUHALER [Concomitant]
     Active Substance: BUDESONIDE
     Indication: Product used for unknown indication

REACTIONS (34)
  - Compression fracture [Not Recovered/Not Resolved]
  - Cardiac failure congestive [Not Recovered/Not Resolved]
  - Pulmonary hypertension [Not Recovered/Not Resolved]
  - Hypokalaemia [Not Recovered/Not Resolved]
  - Light chain disease [Unknown]
  - Dyspnoea [Recovered/Resolved]
  - Oropharyngeal pain [Recovered/Resolved]
  - Drug hypersensitivity [Recovered/Resolved]
  - Pharyngeal swelling [Recovered/Resolved]
  - Pharyngeal erythema [Recovered/Resolved]
  - Dysphonia [Recovered/Resolved]
  - Chronic obstructive pulmonary disease [Not Recovered/Not Resolved]
  - Blood pressure systolic increased [Recovered/Resolved]
  - Cancer pain [Not Recovered/Not Resolved]
  - Nasopharyngitis [Recovered/Resolved]
  - Nausea [Not Recovered/Not Resolved]
  - Urine output decreased [Not Recovered/Not Resolved]
  - Fatigue [Not Recovered/Not Resolved]
  - Iron deficiency anaemia [Not Recovered/Not Resolved]
  - Bone pain [Not Recovered/Not Resolved]
  - Haemoptysis [Recovered/Resolved]
  - Abdominal pain upper [Unknown]
  - Asthenia [Not Recovered/Not Resolved]
  - Kyphosis [Not Recovered/Not Resolved]
  - Feeling abnormal [Not Recovered/Not Resolved]
  - Hypocalcaemia [Recovered/Resolved]
  - Diarrhoea [Not Recovered/Not Resolved]
  - Back pain [Not Recovered/Not Resolved]
  - Skin warm [Not Recovered/Not Resolved]
  - Dry skin [Not Recovered/Not Resolved]
  - Malaise [Not Recovered/Not Resolved]
  - Pain [Recovering/Resolving]
  - Illness [Unknown]
  - Intentional dose omission [Recovered/Resolved]

NARRATIVE: CASE EVENT DATE: 20240108
